FAERS Safety Report 8380299-X (Version None)
Quarter: 2012Q2

REPORT INFORMATION
  Report Type: 
  Country: None (occurrence: None)
  Receive Date: 20120523
  Receipt Date: 20120514
  Transmission Date: 20120825
  Serious: Yes (Hospitalization)
  Sender: FDA-Public Use
  Company Number: JP-JNJFOC-20120515285

PATIENT
  Age: 83 Year
  Sex: Female

DRUGS (1)
  1. GALANTAMINE HYDROBROMIDE [Suspect]
     Indication: DEMENTIA
     Route: 048
     Dates: start: 20110601, end: 20120501

REACTIONS (1)
  - NASOPHARYNGITIS [None]
